FAERS Safety Report 6573189-6 (Version None)
Quarter: 2010Q1

REPORT INFORMATION
  Report Type: 
  Country: None (occurrence: None)
  Receive Date: 20100208
  Receipt Date: 20100106
  Transmission Date: 20100710
  Serious: No
  Sender: FDA-Public Use
  Company Number: US-BAYER-201010442BCC

PATIENT
  Age: 62 Year
  Sex: Female
  Weight: 55 kg

DRUGS (4)
  1. ALEVE (CAPLET) [Suspect]
     Indication: ARTHRITIS
     Dosage: TOTAL DAILY DOSE: 220 MG  UNIT DOSE: 220 MG
     Route: 048
     Dates: start: 20100105
  2. PREMARIN [Concomitant]
     Route: 065
  3. ALLEGRA [Concomitant]
     Route: 065
  4. ONE-A-DAY WOMEN'S 50 PLUS ADVANTAGE [Concomitant]
     Route: 065

REACTIONS (1)
  - INSOMNIA [None]
